FAERS Safety Report 8354785-2 (Version None)
Quarter: 2012Q2

REPORT INFORMATION
  Report Type: 
  Country: None (occurrence: None)
  Receive Date: 20120511
  Receipt Date: 20120427
  Transmission Date: 20120825
  Serious: Yes (Hospitalization)
  Sender: FDA-Public Use
  Company Number: GB-AMGEN-GBRCT2012028198

PATIENT
  Age: 83 Year
  Sex: Male
  Weight: 79.9 kg

DRUGS (10)
  1. OMEPRAZOLE [Concomitant]
     Dosage: UNK
     Dates: start: 20111005
  2. SYMBICORT [Concomitant]
     Dosage: UNK
     Dates: start: 20100709
  3. TIOTROPIUM [Concomitant]
     Dosage: UNK
     Dates: start: 20100709
  4. ACETAMINOPHEN [Concomitant]
     Dosage: UNK
     Dates: start: 20111201, end: 20111220
  5. ALBUTEROL [Concomitant]
     Dosage: UNK
     Dates: start: 20100709
  6. ETANERCEPT [Suspect]
     Indication: PRODUCT USED FOR UNKNOWN INDICATION
     Dosage: 50 MG, QWK
     Dates: start: 20110317, end: 20111114
  7. SIMVASTATIN [Concomitant]
     Dosage: UNK
     Dates: start: 20100709
  8. ACETYLSALICYLIC ACID SRT [Concomitant]
     Dosage: UNK
     Dates: start: 20100709
  9. GLICLAZIDE [Concomitant]
     Dosage: UNK
     Dates: start: 20100709
  10. IBUPROFEN [Concomitant]
     Dosage: UNK
     Dates: start: 20111201, end: 20111220

REACTIONS (2)
  - ABDOMINAL PAIN [None]
  - VOMITING [None]
